FAERS Safety Report 7894058-5 (Version None)
Quarter: 2011Q4

REPORT INFORMATION
  Report Type: 
  Country: None (occurrence: None)
  Receive Date: 20111104
  Receipt Date: 20111031
  Transmission Date: 20120403
  Serious: No
  Sender: FDA-Public Use
  Company Number: BE-ABBOTT-11P-013-0845361-00

PATIENT
  Sex: Female
  Weight: 52 kg

DRUGS (3)
  1. METHOTREXATE [Concomitant]
     Indication: ARTHRITIS
  2. FOLIC ACID [Concomitant]
     Indication: PRODUCT USED FOR UNKNOWN INDICATION
  3. HUMIRA [Suspect]
     Indication: ANKYLOSING SPONDYLITIS

REACTIONS (1)
  - CYST [None]
